FAERS Safety Report 8855730 (Version 1)
Quarter: 2012Q4

REPORT INFORMATION
  Report Type: Spontaneous
  Country: US (occurrence: None)
  Receive Date: 20121019
  Receipt Date: 20121019
  Transmission Date: 20130627
  Serious: Yes (Other)
  Sender: FDA-Public Use
  Company Number: None

PATIENT
  Age: 28 Year
  Sex: Female
  Weight: 58.06 kg

DRUGS (2)
  1. MIRENA [Suspect]
     Indication: CONTRACEPTION
     Dates: start: 201108, end: 201205
  2. MIRENA [Suspect]
     Indication: LIGHT PERIODS
     Dates: start: 201108, end: 201205

REACTIONS (4)
  - Weight increased [None]
  - Irritability [None]
  - Mood swings [None]
  - Premenstrual dysphoric disorder [None]
